FAERS Safety Report 20918282 (Version 2)
Quarter: 2022Q3

REPORT INFORMATION
  Report Type: Report from Study
  Country: CN (occurrence: CN)
  Receive Date: 20220606
  Receipt Date: 20220711
  Transmission Date: 20221026
  Serious: Yes (Hospitalization, Other)
  Sender: FDA-Public Use
  Company Number: CN-GILEAD-2022-0583251

PATIENT
  Age: 57 Year
  Sex: Female

DRUGS (1)
  1. SOFOSBUVIR\VELPATASVIR [Suspect]
     Active Substance: SOFOSBUVIR\VELPATASVIR
     Indication: Chronic hepatitis C
     Dosage: 1 DOSAGE FORM, QD
     Route: 048

REACTIONS (1)
  - Cerebral artery embolism [Unknown]
